FAERS Safety Report 4390604-7 (Version None)
Quarter: 2004Q2

REPORT INFORMATION
  Report Type: 
  Country: None (occurrence: None)
  Receive Date: 20040630
  Receipt Date: 20040616
  Transmission Date: 20050107
  Serious: Yes (Other)
  Sender: FDA-Public Use
  Company Number: 04-000241

PATIENT
  Age: 16 Year
  Sex: Female

DRUGS (1)
  1. ESTROSTEP 21 [Suspect]
     Indication: CONTRACEPTION
     Dosage: 20-30-35/1000MG QD, ORAL
     Route: 048
     Dates: start: 20040601, end: 20040601

REACTIONS (2)
  - HEPATOTOXICITY [None]
  - JAUNDICE [None]
